FAERS Safety Report 22961566 (Version 2)
Quarter: 2024Q3

REPORT INFORMATION
  Report Type: Report from Study
  Country: US (occurrence: US)
  Receive Date: 20230920
  Receipt Date: 20240702
  Transmission Date: 20241017
  Serious: Yes (Hospitalization)
  Sender: SANOFI AVENTIS
  Company Number: US-SA-SAC20230406001418

PATIENT
  Age: 55 Year
  Sex: Female

DRUGS (1)
  1. BELUMOSUDIL MESYLATE [Suspect]
     Active Substance: BELUMOSUDIL MESYLATE
     Indication: Acute lymphocytic leukaemia
     Dosage: 200 MG, QD
     Route: 048
     Dates: start: 20230317

REACTIONS (6)
  - Gastrointestinal infection [Unknown]
  - Gait disturbance [Unknown]
  - Pain in extremity [Unknown]
  - Influenza like illness [Unknown]
  - Product use in unapproved indication [Unknown]
  - Drug ineffective [Unknown]

NARRATIVE: CASE EVENT DATE: 20230317
